FAERS Safety Report 14743994 (Version 1)
Quarter: 2018Q2

REPORT INFORMATION
  Report Type: Spontaneous
  Country: US (occurrence: US)
  Receive Date: 20180411
  Receipt Date: 20180411
  Transmission Date: 20180711
  Serious: No
  Sender: FDA-Public Use
  Company Number: US-TAKEDA-2018TUS008807

PATIENT
  Sex: Female
  Weight: 54.42 kg

DRUGS (1)
  1. DEXILANT [Suspect]
     Active Substance: DEXLANSOPRAZOLE
     Indication: BARRETT^S OESOPHAGUS
     Dosage: 60 MG, BID
     Route: 048
     Dates: start: 20180330

REACTIONS (3)
  - No adverse event [Unknown]
  - Off label use [Unknown]
  - Overdose [Unknown]
